FAERS Safety Report 15635713 (Version 1)
Quarter: 2018Q4

REPORT INFORMATION
  Report Type: Spontaneous
  Country: ES (occurrence: ES)
  Receive Date: 20181120
  Receipt Date: 20181120
  Transmission Date: 20190205
  Serious: Yes (Death, Hospitalization, Other)
  Sender: FDA-Public Use
  Company Number: ES-AUROBINDO-AUR-APL-2017-48328

PATIENT
  Age: 64 Year
  Sex: Male

DRUGS (24)
  1. FOLINIC ACID [Suspect]
     Active Substance: LEUCOVORIN
     Indication: METASTASES TO LIVER
     Dosage: UNK
     Route: 065
  2. FLUOROURACIL. [Suspect]
     Active Substance: FLUOROURACIL
     Indication: METASTASES TO LIVER
     Dosage: UNK () ; CYCLICAL
     Route: 065
  3. CALCIUM FOLINATE [Suspect]
     Active Substance: LEUCOVORIN CALCIUM
     Indication: RECTOSIGMOID CANCER STAGE IV
     Dosage: UNK UNK, CYCLIC  ; CYCLICAL
     Route: 065
  4. CETUXIMAB. [Concomitant]
     Active Substance: CETUXIMAB
     Dosage: ()
  5. IRINOTECAN CONCENTRATE FOR SOLUTION FOR INFUSION [Suspect]
     Active Substance: IRINOTECAN
     Indication: METASTASES TO LIVER
     Dosage: UNK UNK, CYCLIC  ; CYCLICAL
  6. CAPECITABINE. [Suspect]
     Active Substance: CAPECITABINE
     Indication: RECTOSIGMOID CANCER STAGE IV
     Dosage: UNK UNK, CYCLIC (SEVEN CYCLES)  ; CYCLICAL
     Route: 065
  7. CAPECITABINE. [Suspect]
     Active Substance: CAPECITABINE
     Dosage: UNKNOWN ()
     Route: 065
  8. IRINOTECAN CONCENTRATE FOR SOLUTION FOR INFUSION [Suspect]
     Active Substance: IRINOTECAN
     Indication: OFF LABEL USE
  9. BEVACIZUMAB. [Concomitant]
     Active Substance: BEVACIZUMAB
     Indication: RECTOSIGMOID CANCER STAGE IV
     Dosage: UNK, CYCLIC (SEVEN CYCLES)  ; CYCLICAL
  10. FLUOROURACIL W/FOLINIC ACID/IRINOTECAN [Concomitant]
     Indication: PRODUCT USED FOR UNKNOWN INDICATION
     Dosage: UNKNOWN
     Route: 065
  11. FLUOROURACIL. [Suspect]
     Active Substance: FLUOROURACIL
     Dosage: UNKNOWN () ; CYCLICAL
     Route: 065
  12. AFLIBERCEPT [Suspect]
     Active Substance: AFLIBERCEPT
     Indication: METASTASES TO LIVER
     Dosage: UNKNOWN () ; CYCLICAL
     Route: 065
  13. OXALIPLATIN. [Concomitant]
     Active Substance: OXALIPLATIN
     Indication: RECTOSIGMOID CANCER STAGE IV
     Dosage: UNK
     Route: 065
  14. OXALIPLATIN. [Suspect]
     Active Substance: OXALIPLATIN
     Indication: ADENOCARCINOMA OF COLON
     Dosage: UNK
     Route: 065
  15. FLUOROURACIL. [Suspect]
     Active Substance: FLUOROURACIL
     Indication: RECTOSIGMOID CANCER STAGE IV
     Dosage: UNK  ; CYCLICAL
     Route: 065
  16. CALCIUM FOLINATE [Suspect]
     Active Substance: LEUCOVORIN CALCIUM
     Dosage: UNKNOWN () ; CYCLICAL
  17. AFLIBERCEPT [Suspect]
     Active Substance: AFLIBERCEPT
     Dosage: UNKNOWN () ; CYCLICAL
     Route: 065
  18. IRINOTECAN CONCENTRATE FOR SOLUTION FOR INFUSION [Suspect]
     Active Substance: IRINOTECAN
     Indication: RECTOSIGMOID CANCER STAGE IV
  19. OXALIPLATIN. [Suspect]
     Active Substance: OXALIPLATIN
     Indication: METASTASES TO LIVER
  20. FOLINIC ACID [Suspect]
     Active Substance: LEUCOVORIN
     Indication: ADENOCARCINOMA OF COLON
     Dosage: UNKNOWN ()
     Route: 065
  21. CETUXIMAB. [Concomitant]
     Active Substance: CETUXIMAB
     Indication: RECTOSIGMOID CANCER STAGE IV
     Dosage: UNK, CYCLIC  ; CYCLICAL
  22. FOLINIC ACID [Suspect]
     Active Substance: LEUCOVORIN
     Indication: RECTOSIGMOID CANCER STAGE IV
     Dosage: UNKNOWN ()
     Route: 065
  23. AFLIBERCEPT [Suspect]
     Active Substance: AFLIBERCEPT
     Indication: RECTOSIGMOID CANCER STAGE IV
     Dosage: UNK UNK, CYCLIC  ; CYCLICAL
     Route: 065
  24. OXALIPLATIN. [Concomitant]
     Active Substance: OXALIPLATIN
     Dosage: ()

REACTIONS (28)
  - Renal failure [Fatal]
  - Chills [Fatal]
  - Induration [Fatal]
  - Prothrombin level decreased [Fatal]
  - Drug ineffective [Unknown]
  - Adenocarcinoma of colon [Unknown]
  - Candida infection [Fatal]
  - Klebsiella infection [Fatal]
  - Leukocytosis [Fatal]
  - C-reactive protein increased [Fatal]
  - Hypotension [Fatal]
  - Fournier^s gangrene [Fatal]
  - Erythema [Fatal]
  - Musculoskeletal pain [Unknown]
  - Blood creatine phosphokinase increased [Fatal]
  - Proteus infection [Unknown]
  - Inflammation [Fatal]
  - Blood creatinine increased [Fatal]
  - Blood lactic acid increased [Fatal]
  - Off label use [Fatal]
  - Death [Fatal]
  - Coagulopathy [Fatal]
  - Clostridial infection [Fatal]
  - Pyrexia [Fatal]
  - Malignant neoplasm progression [Unknown]
  - Tachycardia [Fatal]
  - Tenderness [Fatal]
  - Neutrophilia [Fatal]
